FAERS Safety Report 11181153 (Version 1)
Quarter: 2015Q2

REPORT INFORMATION
  Report Type: Spontaneous
  Country: US (occurrence: US)
  Receive Date: 20150611
  Receipt Date: 20150611
  Transmission Date: 20150821
  Serious: Yes (Life-Threatening, Hospitalization)
  Sender: FDA-Public Use
  Company Number: US-HOSPIRA-2890174

PATIENT
  Age: 57 Year
  Sex: Female
  Weight: 71 kg

DRUGS (8)
  1. AVINZA [Suspect]
     Active Substance: MORPHINE SULFATE
     Indication: PAIN
     Route: 048
  2. OXYCONTIN [Suspect]
     Active Substance: OXYCODONE HYDROCHLORIDE
     Indication: PAIN
     Route: 048
     Dates: start: 20150526
  3. MORPHINE SULPHATE [Suspect]
     Active Substance: MORPHINE SULFATE
     Indication: PAIN
     Dosage: RECEIVED IN PREVOIUSLY IMPLANTED DEVICE
     Route: 050
  4. DEMEROL [Suspect]
     Active Substance: MEPERIDINE HYDROCHLORIDE
     Indication: PAIN
     Dosage: RECEIVED IN PREVIOUSLY IMPLANTED DEVICE
     Route: 050
  5. SOMA [Suspect]
     Active Substance: CARISOPRODOL
     Indication: PAIN
  6. MORPHINE [Suspect]
     Active Substance: MORPHINE
     Indication: PAIN
     Dates: start: 201504, end: 20150522
  7. DURAGESIC [Suspect]
     Active Substance: FENTANYL
     Indication: PAIN
     Route: 062
     Dates: start: 1991, end: 1995
  8. NARCAN [Suspect]
     Active Substance: NALOXONE HYDROCHLORIDE
     Indication: PAIN

REACTIONS (11)
  - Drug withdrawal syndrome [Unknown]
  - Urinary incontinence [Unknown]
  - Drug dose omission [Unknown]
  - Treatment noncompliance [Unknown]
  - Loss of consciousness [Unknown]
  - Chest pain [Unknown]
  - Dyspnoea [Unknown]
  - Resuscitation [Unknown]
  - Medical device complication [Unknown]
  - Drug ineffective [Unknown]
  - Cardiac arrest [Unknown]

NARRATIVE: CASE EVENT DATE: 2015
